FAERS Safety Report 17493062 (Version 1)
Quarter: 2020Q1

REPORT INFORMATION
  Report Type: Spontaneous
  Country: US (occurrence: US)
  Receive Date: 20200304
  Receipt Date: 20200304
  Transmission Date: 20200409
  Serious: No
  Sender: FDA-Public Use
  Company Number: US-VISTAPHARM, INC.-VER201906-000460

PATIENT
  Sex: Female

DRUGS (1)
  1. HYDROCODONE AND ACETAMINOPHEN [Suspect]
     Active Substance: ACETAMINOPHEN\HYDROCODONE
     Indication: CENTRAL PAIN SYNDROME
     Dosage: 30 ML FOUR TIMES A DAY BY MOUTH AS NEEDED (7.5MG/325MG PER 15 ML)
     Route: 048
     Dates: start: 20190622

REACTIONS (4)
  - Nausea [Recovering/Resolving]
  - Migraine [Recovering/Resolving]
  - Vomiting [Recovering/Resolving]
  - Dyspepsia [Recovering/Resolving]
